FAERS Safety Report 5175210-9 (Version None)
Quarter: 2006Q4

REPORT INFORMATION
  Report Type: 
  Country: None (occurrence: None)
  Receive Date: 20061206
  Receipt Date: 20061122
  Transmission Date: 20070319
  Serious: Yes (Other)
  Sender: FDA-Public Use
  Company Number: US018912

PATIENT
  Age: 37 Year
  Sex: Female

DRUGS (4)
  1. TRISENOX [Suspect]
     Indication: ACUTE PROMYELOCYTIC LEUKAEMIA
     Dosage: 8.978 MG QD INTRAVENOUS DRIP
     Route: 041
     Dates: start: 20060721, end: 20060723
  2. TRISENOX [Suspect]
     Indication: ACUTE PROMYELOCYTIC LEUKAEMIA
     Dosage: 8.978 MG QD INTRAVENOUS DRIP
     Route: 041
     Dates: start: 20060725, end: 20060816
  3. MEXILETINE HYDROCHLORIDE [Concomitant]
  4. GRANISETRON  HCL [Concomitant]

REACTIONS (13)
  - ACCELERATED IDIOVENTRICULAR RHYTHM [None]
  - ACUTE PROMYELOCYTIC LEUKAEMIA DIFFERENTIATION SYNDROME [None]
  - ALANINE AMINOTRANSFERASE INCREASED [None]
  - ALOPECIA [None]
  - ASPARTATE AMINOTRANSFERASE INCREASED [None]
  - BLOOD LACTATE DEHYDROGENASE INCREASED [None]
  - C-REACTIVE PROTEIN INCREASED [None]
  - ELECTROCARDIOGRAM QT CORRECTED INTERVAL PROLONGED [None]
  - GAMMA-GLUTAMYLTRANSFERASE INCREASED [None]
  - HEPATIC FUNCTION ABNORMAL [None]
  - LEUKOCYTOSIS [None]
  - NAUSEA [None]
  - VENTRICULAR TACHYCARDIA [None]
